FAERS Safety Report 4656601-9 (Version None)
Quarter: 2005Q2

REPORT INFORMATION
  Report Type: 
  Country: None (occurrence: None)
  Receive Date: 20050506
  Receipt Date: 20050425
  Transmission Date: 20051028
  Serious: Yes (Life-Threatening, Other)
  Sender: FDA-Public Use
  Company Number: 200510212BVD

PATIENT
  Age: 46 Year
  Sex: Male
  Weight: 63.3 kg

DRUGS (10)
  1. CIPROFLOXACIN [Suspect]
     Indication: SEPSIS
     Dosage: 400 MG, TOTAL DAILY, INTRAVENOUS
     Route: 042
     Dates: start: 20041212, end: 20041217
  2. GENTAMICIN [Concomitant]
  3. METOPROLOL SUCCINATE [Concomitant]
  4. DELIX [Concomitant]
  5. PANTOPRAZOLE SODIUM [Concomitant]
  6. ANAFRANIL CAP [Concomitant]
  7. MULTI-VITAMINS [Concomitant]
  8. ACC [Concomitant]
  9. AGIOCUR [Concomitant]
  10. PASPERTIN [Concomitant]

REACTIONS (6)
  - DILATATION VENTRICULAR [None]
  - HYPOKALAEMIA [None]
  - LONG QT SYNDROME [None]
  - TACHYCARDIA [None]
  - TORSADE DE POINTES [None]
  - VENTRICULAR DYSFUNCTION [None]
